FAERS Safety Report 4930731-6 (Version None)
Quarter: 2006Q1

REPORT INFORMATION
  Report Type: 
  Country: None (occurrence: None)
  Receive Date: 20060227
  Receipt Date: 20050321
  Transmission Date: 20060701
  Serious: Yes (Other)
  Sender: FDA-Public Use
  Company Number: US-ELI_LILLY_AND_CO-US_0503114556

PATIENT
  Age: 55 Year
  Sex: Female

DRUGS (12)
  1. PERMAX [Suspect]
     Indication: PARKINSON'S DISEASE
     Dosage: SEE IMAGE
     Dates: start: 19990801, end: 20000401
  2. PERMAX [Suspect]
     Indication: PARKINSON'S DISEASE
     Dosage: SEE IMAGE
     Dates: start: 20000518, end: 20000601
  3. PERMAX [Suspect]
     Indication: PARKINSON'S DISEASE
     Dosage: SEE IMAGE
     Dates: start: 20000601, end: 20000615
  4. PERMAX [Suspect]
     Indication: PARKINSON'S DISEASE
     Dosage: SEE IMAGE
     Dates: start: 20000615, end: 20000629
  5. PERMAX [Suspect]
     Indication: PARKINSON'S DISEASE
     Dosage: SEE IMAGE
     Dates: start: 20000629, end: 20000713
  6. PERMAX [Suspect]
     Indication: PARKINSON'S DISEASE
     Dosage: SEE IMAGE
     Dates: start: 20010703, end: 20030301
  7. CLONAZEPAM [Concomitant]
  8. PREMARIN [Concomitant]
  9. TOCOPHERYL ACETATE [Concomitant]
  10. TRIHEXYPHENIDYL HYDROCHLORIDE [Concomitant]
  11. CELECOXIB [Concomitant]
  12. PAROXETINE HYDROCHLORIDE [Concomitant]

REACTIONS (21)
  - ABDOMINAL PAIN [None]
  - ANXIETY [None]
  - AORTIC VALVE INCOMPETENCE [None]
  - BACK PAIN [None]
  - CARDIAC VALVE DISEASE [None]
  - CHEST PAIN [None]
  - CHORDAE TENDINAE RUPTURE [None]
  - CORONARY ARTERY DISEASE [None]
  - DILATATION ATRIAL [None]
  - DYSPNOEA [None]
  - HYPERHIDROSIS [None]
  - INSOMNIA [None]
  - MITRAL VALVE INCOMPETENCE [None]
  - MYALGIA [None]
  - NAUSEA [None]
  - PALPITATIONS [None]
  - PANIC ATTACK [None]
  - PANIC DISORDER [None]
  - PULMONARY VALVE INCOMPETENCE [None]
  - TACHYCARDIA [None]
  - TRICUSPID VALVE INCOMPETENCE [None]
